FAERS Safety Report 6716848-4 (Version None)
Quarter: 2010Q2

REPORT INFORMATION
  Report Type: 
  Country: None (occurrence: None)
  Receive Date: 20100510
  Receipt Date: 20100426
  Transmission Date: 20101027
  Serious: Yes (Other)
  Sender: FDA-Public Use
  Company Number: DE-RANBAXY-2010RR-33551

PATIENT

DRUGS (5)
  1. SIMVA BASICS 20MG FILMTABLETTEN [Suspect]
     Indication: TYPE IV HYPERLIPIDAEMIA
  2. BISOPROLOL [Concomitant]
     Dosage: 5 MG, BID
  3. LOSARTAN POTASSIUM [Concomitant]
     Dosage: 50 MG, UNK
  4. LEVOTHYROXINE SODIUM [Concomitant]
     Dosage: 150 UG, QD
  5. OPRIPRAMOL [Concomitant]
     Dosage: 50 MG, BID

REACTIONS (8)
  - ARTHRALGIA [None]
  - HEPATIC ENZYME ABNORMAL [None]
  - MUSCLE SPASMS [None]
  - MYOPATHY [None]
  - NEUROPATHY PERIPHERAL [None]
  - PIGMENTATION DISORDER [None]
  - RASH [None]
  - SERUM FERRITIN INCREASED [None]
